FAERS Safety Report 19900926 (Version 2)
Quarter: 2021Q4

REPORT INFORMATION
  Report Type: Spontaneous
  Country: US (occurrence: US)
  Receive Date: 20210929
  Receipt Date: 20211019
  Transmission Date: 20220303
  Serious: No
  Sender: FDA-Public Use
  Company Number: US-NXDC-GLE-0023-2021

PATIENT
  Age: 73 Year
  Sex: Female
  Weight: 101.2 kg

DRUGS (10)
  1. GLEOLAN [Suspect]
     Active Substance: AMINOLEVULINIC ACID HYDROCHLORIDE
     Indication: Photodynamic diagnostic procedure
     Route: 048
     Dates: start: 20210917, end: 20210917
  2. LOSARTAN [Concomitant]
     Active Substance: LOSARTAN
     Dosage: 100 MG QD
  3. METFORMIN [Concomitant]
     Active Substance: METFORMIN HYDROCHLORIDE
     Dosage: 240 MG QAM
  4. WARFARIN [Concomitant]
     Active Substance: WARFARIN
     Dosage: 7.5 MG M/T/W
  5. WARFARIN [Concomitant]
     Active Substance: WARFARIN
     Dosage: 5 MG THURS/F
  6. ASPIRIN [Concomitant]
     Active Substance: ASPIRIN
     Dosage: 325 MG QD
  7. DIETARY SUPPLEMENT [Concomitant]
     Active Substance: DIETARY SUPPLEMENT
     Dosage: FOUR TIMES A DAY
  8. ACETAMINOPHEN [Concomitant]
     Active Substance: ACETAMINOPHEN
     Indication: Premedication
     Dosage: 650MG PRN (1 DAY PRIOR)
  9. HEPARIN [Concomitant]
     Active Substance: HEPARIN SODIUM
     Indication: Premedication
  10. LEVETIRACETAM [Concomitant]
     Active Substance: LEVETIRACETAM
     Indication: Premedication
     Dosage: 1000MG TWO TIMES DAILY

REACTIONS (3)
  - Photosensitivity reaction [Recovered/Resolved]
  - Product use issue [Unknown]
  - Contraindicated product administered [Unknown]

NARRATIVE: CASE EVENT DATE: 20210917
